FAERS Safety Report 8840139 (Version 2)
Quarter: 2013Q2

REPORT INFORMATION
  Report Type: Spontaneous
  Country: US (occurrence: US)
  Receive Date: 20121015
  Receipt Date: 20130628
  Transmission Date: 20140414
  Serious: Yes (Other)
  Sender: FDA-Public Use
  Company Number: US-BAYER-2012-105809

PATIENT
  Age: 23 Year
  Sex: Female
  Weight: 79.5 kg

DRUGS (2)
  1. MIRENA [Suspect]
     Indication: CONTRACEPTION
     Dosage: 20 MCG/24HR, CONT
     Route: 015
     Dates: start: 20080125, end: 20120914
  2. PRENATAL VITAMINS [Concomitant]

REACTIONS (5)
  - Pregnancy with contraceptive device [Recovered/Resolved]
  - Device expulsion [None]
  - Drug ineffective [None]
  - Cholestasis of pregnancy [None]
  - Labour induction [None]
